FAERS Safety Report 6908065-X (Version None)
Quarter: 2010Q3

REPORT INFORMATION
  Report Type: 
  Country: None (occurrence: None)
  Receive Date: 20100805
  Receipt Date: 20100727
  Transmission Date: 20110219
  Serious: Yes (Hospitalization)
  Sender: FDA-Public Use
  Company Number: ES-ELI_LILLY_AND_COMPANY-ES200909001420

PATIENT
  Sex: Female
  Weight: 69 kg

DRUGS (10)
  1. PEMETREXED [Suspect]
     Indication: NON-SMALL CELL LUNG CANCER
     Dosage: 852 MG EVERY 21 DAYS
     Route: 042
     Dates: start: 20090713, end: 20090907
  2. CETUXIMAB [Suspect]
     Indication: NON-SMALL CELL LUNG CANCER
     Dosage: 426 MG, WEEKLY (1/W)
     Route: 042
     Dates: start: 20090713, end: 20090907
  3. CISPLATIN [Suspect]
     Indication: NON-SMALL CELL LUNG CANCER
     Dosage: 128 MG EVERY 21 DAYS
     Route: 042
     Dates: start: 20090713, end: 20090907
  4. FOLIC ACID [Concomitant]
     Indication: PROPHYLAXIS
     Dates: start: 20090629
  5. VITAMIN B-12 [Concomitant]
     Indication: PROPHYLAXIS
     Dates: start: 20090629, end: 20090831
  6. DEXAMETHASONE [Concomitant]
     Indication: PROPHYLAXIS
     Dates: start: 20090823, end: 20090825
  7. ANTIHISTAMINES [Concomitant]
     Indication: PROPHYLAXIS
     Dates: start: 20090824, end: 20090824
  8. LOSARTAN [Concomitant]
     Indication: HYPERTENSION
  9. HIDROCLOROTIAZIDA [Concomitant]
     Indication: HYPERTENSION
  10. AMLODIPINO                         /00972401/ [Concomitant]
     Indication: HYPERTENSION

REACTIONS (1)
  - PULMONARY EMBOLISM [None]
